FAERS Safety Report 12276621 (Version 1)
Quarter: 2016Q2

REPORT INFORMATION
  Report Type: Spontaneous
  Country: US (occurrence: US)
  Receive Date: 20160418
  Receipt Date: 20160418
  Transmission Date: 20160815
  Serious: Yes (Other)
  Sender: FDA-Public Use
  Company Number: US-GLAXOSMITHKLINE-US2016GSK049391

PATIENT
  Sex: Female

DRUGS (6)
  1. GABAPENTIN. [Suspect]
     Active Substance: GABAPENTIN
  2. KEPPRA [Suspect]
     Active Substance: LEVETIRACETAM
  3. CARBATROL [Suspect]
     Active Substance: CARBAMAZEPINE
  4. LAMICTAL [Suspect]
     Active Substance: LAMOTRIGINE
  5. TRILEPTAL [Suspect]
     Active Substance: OXCARBAZEPINE
  6. VIMPAT [Suspect]
     Active Substance: LACOSAMIDE

REACTIONS (7)
  - Headache [Unknown]
  - Balance disorder [Unknown]
  - Impaired work ability [Unknown]
  - Memory impairment [Unknown]
  - Loss of consciousness [Unknown]
  - Dizziness [Unknown]
  - Insomnia [Unknown]
